FAERS Safety Report 8239484-X (Version None)
Quarter: 2012Q1

REPORT INFORMATION
  Report Type: 
  Country: None (occurrence: None)
  Receive Date: 20120328
  Receipt Date: 20120323
  Transmission Date: 20120608
  Serious: No
  Sender: FDA-Public Use
  Company Number: US-PFIZER INC-2012076208

PATIENT
  Age: 72 Year
  Sex: Male

DRUGS (2)
  1. VIAGRA [Suspect]
     Dosage: UNK
     Route: 048
  2. CIALIS [Suspect]
     Dosage: UNK

REACTIONS (3)
  - DYSPEPSIA [None]
  - DRUG INEFFECTIVE [None]
  - HEADACHE [None]
